FAERS Safety Report 4779410-9 (Version None)
Quarter: 2005Q3

REPORT INFORMATION
  Report Type: 
  Country: None (occurrence: None)
  Receive Date: 20050927
  Receipt Date: 20050831
  Transmission Date: 20060218
  Serious: Yes (Other)
  Sender: FDA-Public Use
  Company Number: US-KINGPHARMUSA00001-K200501148

PATIENT
  Age: 58 Year
  Sex: Male
  Weight: 47 kg

DRUGS (4)
  1. KEMADRIN [Suspect]
     Indication: EXTRAPYRAMIDAL DISORDER
     Dosage: 5 MG, UNK
     Route: 048
     Dates: start: 20050810, end: 20050816
  2. CHLORPROMAZINE HCL [Concomitant]
     Dates: start: 20050630
  3. DONEPEZIL HYDROCHLORIDE [Concomitant]
     Dates: start: 20040705
  4. SERTRALINE HCL [Concomitant]
     Dates: start: 20050707

REACTIONS (7)
  - BALANCE DISORDER [None]
  - DEPRESSED LEVEL OF CONSCIOUSNESS [None]
  - DYSKINESIA [None]
  - MUSCULOSKELETAL STIFFNESS [None]
  - PARKINSONISM [None]
  - PSYCHOMOTOR HYPERACTIVITY [None]
  - TREMOR [None]
